FAERS Safety Report 6917303-9 (Version None)
Quarter: 2010Q3

REPORT INFORMATION
  Report Type: 
  Country: None (occurrence: None)
  Receive Date: 20100810
  Receipt Date: 20100727
  Transmission Date: 20110219
  Serious: Yes (Hospitalization)
  Sender: FDA-Public Use
  Company Number: US-ELI_LILLY_AND_COMPANY-US201007007767

PATIENT
  Age: 84 Year
  Sex: Female

DRUGS (6)
  1. CYMBALTA [Suspect]
     Indication: MAJOR DEPRESSION
     Dosage: 30 MG, 3/D
  2. CYMBALTA [Suspect]
     Dosage: 60 MG, 120 MG IN THE AM AND 60 MG IN THE PM
     Dates: end: 20100726
  3. CYMBALTA [Suspect]
     Dosage: 90 MG, DAILY (1/D)
     Dates: start: 20100726
  4. VICODIN [Concomitant]
     Dosage: 750/7.5 D/F, 2/D
  5. FEMARA [Concomitant]
     Dosage: 2.5 D/F, DAILY (1/D)
  6. VITAMIN B12 NOS [Concomitant]
     Dosage: 1000 UG, MONTHLY (1/M)
     Route: 030

REACTIONS (4)
  - CRYING [None]
  - HOSPITALISATION [None]
  - NEGATIVE THOUGHTS [None]
  - OVERDOSE [None]
